FAERS Safety Report 25774540 (Version 3)
Quarter: 2025Q4

REPORT INFORMATION
  Report Type: Spontaneous
  Country: US (occurrence: US)
  Receive Date: 20250908
  Receipt Date: 20251010
  Transmission Date: 20260118
  Serious: Yes (Life-Threatening)
  Sender: BAUSCH AND LOMB
  Company Number: US-BAUSCH-BH-2025-017202

PATIENT
  Age: 33 Year
  Sex: Female

DRUGS (1)
  1. DEXAMETHASONE [Suspect]
     Active Substance: DEXAMETHASONE
     Indication: Spinal cord oedema
     Route: 042

REACTIONS (1)
  - Phaeochromocytoma crisis [Unknown]
